FAERS Safety Report 8874189 (Version 2)
Quarter: 2013Q1

REPORT INFORMATION
  Report Type: Spontaneous
  Country: US (occurrence: US)
  Receive Date: 20121023
  Receipt Date: 20130118
  Transmission Date: 20140127
  Serious: No
  Sender: FDA-Public Use
  Company Number: US-ASTRAZENECA-2012SE78023

PATIENT
  Age: 53 Year
  Sex: Female
  Weight: 64.9 kg

DRUGS (1)
  1. CRESTOR [Suspect]
     Route: 048

REACTIONS (3)
  - Adverse drug reaction [Unknown]
  - Pain in extremity [Recovered/Resolved]
  - Muscular weakness [Recovered/Resolved]
